FAERS Safety Report 4306408-7 (Version None)
Quarter: 2004Q1

REPORT INFORMATION
  Report Type: 
  Country: None (occurrence: None)
  Receive Date: 20040225
  Receipt Date: 20030702
  Transmission Date: 20041129
  Serious: No
  Sender: FDA-Public Use
  Company Number: US-BRISTOL-MYERS SQUIBB COMPANY-12321527

PATIENT
  Age: 29 Year
  Sex: Female
  Weight: 68 kg

DRUGS (1)
  1. EXCEDRIN (MIGRAINE) [Suspect]
     Indication: HEADACHE
     Dosage: NUMBER OF DOSAGES: TOOK 2-3 TIMES ON 01-JULY-03.
     Route: 048
     Dates: start: 20030701, end: 20030701

REACTIONS (1)
  - HAEMORRHAGE SUBCUTANEOUS [None]
